FAERS Safety Report 6598724-3 (Version None)
Quarter: 2010Q1

REPORT INFORMATION
  Report Type: 
  Country: None (occurrence: None)
  Receive Date: 20100224
  Receipt Date: 20100211
  Transmission Date: 20100710
  Serious: Yes (Death, Life-Threatening)
  Sender: FDA-Public Use
  Company Number: US-TYCO HEALTHCARE/MALLINCKRODT-T201000620

PATIENT
  Age: 3 Year
  Sex: Female

DRUGS (1)
  1. OXYCODONE [Suspect]
     Dosage: UNK
     Route: 065

REACTIONS (3)
  - APNOEA [None]
  - OVERDOSE [None]
  - PULSE ABSENT [None]
